FAERS Safety Report 6607841-0 (Version None)
Quarter: 2010Q1

REPORT INFORMATION
  Report Type: 
  Country: None (occurrence: None)
  Receive Date: 20100301
  Receipt Date: 20100225
  Transmission Date: 20100710
  Serious: Yes (Other)
  Sender: FDA-Public Use
  Company Number: US-RB-003555-10

PATIENT
  Age: 38 Year
  Sex: Male

DRUGS (4)
  1. MUCINEX D [Suspect]
     Route: 048
     Dates: start: 20100221
  2. SAVASTIOUM [Concomitant]
  3. GLUCOPHAGE [Concomitant]
  4. NEXIUM [Concomitant]

REACTIONS (1)
  - HYPERTENSION [None]
